FAERS Safety Report 25616035 (Version 1)
Quarter: 2025Q3

REPORT INFORMATION
  Report Type: Spontaneous
  Country: CN (occurrence: CN)
  Receive Date: 20250729
  Receipt Date: 20250729
  Transmission Date: 20251020
  Serious: Yes (Hospitalization)
  Sender: Haleon PLC
  Company Number: CN-HALEON-2253917

PATIENT
  Age: 12 Year
  Sex: Female
  Weight: 36 kg

DRUGS (1)
  1. DEXTROMETHORPHAN HYDROBROMIDE\GUAIFENESIN [Suspect]
     Active Substance: DEXTROMETHORPHAN HYDROBROMIDE\GUAIFENESIN
     Indication: Accidental exposure to product by child
     Route: 048
     Dates: start: 20250716, end: 20250716

REACTIONS (8)
  - Delirium [Recovering/Resolving]
  - Pharyngeal erythema [Recovering/Resolving]
  - Electrocardiogram T wave abnormal [Recovering/Resolving]
  - Accidental overdose [Unknown]
  - Accidental exposure to product by child [Unknown]
  - Toxicity to various agents [Recovering/Resolving]
  - Indifference [Recovering/Resolving]
  - Myoclonus [Recovering/Resolving]

NARRATIVE: CASE EVENT DATE: 20250716
